FAERS Safety Report 12277542 (Version 5)
Quarter: 2019Q2

REPORT INFORMATION
  Report Type: Report from Study
  Country: None (occurrence: BR)
  Receive Date: 20160418
  Receipt Date: 20190611
  Transmission Date: 20190711
  Serious: Yes (Hospitalization, Disabling, Other)
  Sender: FDA-Public Use
  Company Number: BR-ABBVIE-16K-020-1603370-00

PATIENT
  Age: 65 Year
  Sex: Female
  Weight: 60 kg

DRUGS (9)
  1. HUMIRA [Suspect]
     Active Substance: ADALIMUMAB
     Route: 058
     Dates: start: 20170825
  2. OMEPRAZOLE. [Concomitant]
     Active Substance: OMEPRAZOLE
     Indication: PROPHYLAXIS
     Dates: start: 1986
  3. OMEPRAZOLE. [Concomitant]
     Active Substance: OMEPRAZOLE
     Indication: GASTRIC DISORDER
  4. HUMIRA [Suspect]
     Active Substance: ADALIMUMAB
     Route: 058
     Dates: end: 20170807
  5. METHOTREXATE. [Concomitant]
     Active Substance: METHOTREXATE
     Indication: PRODUCT USED FOR UNKNOWN INDICATION
  6. CLONAZEPAN [Concomitant]
     Active Substance: CLONAZEPAM
     Indication: INSOMNIA
  7. HUMIRA [Suspect]
     Active Substance: ADALIMUMAB
     Indication: RHEUMATOID ARTHRITIS
     Route: 058
     Dates: start: 20041028
  8. CYCLOBENZAPRINE. [Concomitant]
     Active Substance: CYCLOBENZAPRINE
     Indication: ARTHRITIS
     Route: 048
     Dates: start: 1986
  9. NORFLOXACIN [Concomitant]
     Active Substance: NORFLOXACIN
     Indication: URINARY TRACT INFECTION
     Route: 048
     Dates: start: 201603

REACTIONS (34)
  - Amnesia [Recovered/Resolved]
  - Malaise [Not Recovered/Not Resolved]
  - Urinary tract infection [Recovered/Resolved]
  - Joint warmth [Unknown]
  - Mobility decreased [Unknown]
  - Peripheral swelling [Not Recovered/Not Resolved]
  - Arthralgia [Unknown]
  - Haematoma [Not Recovered/Not Resolved]
  - Limb injury [Not Recovered/Not Resolved]
  - Hypertension [Unknown]
  - Abdominal pain upper [Unknown]
  - Nausea [Unknown]
  - Gait inability [Unknown]
  - Malaise [Unknown]
  - Amnesia [Not Recovered/Not Resolved]
  - Blood cholesterol increased [Unknown]
  - Insomnia [Unknown]
  - Pain [Unknown]
  - Vomiting [Recovered/Resolved]
  - Aphasia [Recovered/Resolved]
  - Abdominal distension [Unknown]
  - Weight decreased [Recovered/Resolved]
  - Weight decreased [Not Recovered/Not Resolved]
  - Cerebral disorder [Unknown]
  - Blood pressure increased [Unknown]
  - Arthralgia [Not Recovered/Not Resolved]
  - Arthritis [Unknown]
  - Fall [Not Recovered/Not Resolved]
  - Pain in extremity [Not Recovered/Not Resolved]
  - Diabetes mellitus [Recovering/Resolving]
  - Blood pressure increased [Recovered/Resolved]
  - Hypophagia [Recovered/Resolved]
  - Retching [Unknown]
  - Urinary tract infection [Recovering/Resolving]

NARRATIVE: CASE EVENT DATE: 2014
